FAERS Safety Report 12723352 (Version 1)
Quarter: 2016Q3

REPORT INFORMATION
  Report Type: Spontaneous
  Country: GB (occurrence: GB)
  Receive Date: 20160908
  Receipt Date: 20160908
  Transmission Date: 20161109
  Serious: Yes (Hospitalization, Disabling, Other)
  Sender: FDA-Public Use
  Company Number: GB-AMGEN-GBRSP2016117192

PATIENT
  Age: 46 Year
  Sex: Female
  Weight: 62 kg

DRUGS (17)
  1. METHYLPREDNISOLONE. [Concomitant]
     Active Substance: METHYLPREDNISOLONE
  2. NEORECORMON [Concomitant]
     Active Substance: ERYTHROPOIETIN
  3. REPATHA [Suspect]
     Active Substance: EVOLOCUMAB
     Indication: HYPERCHOLESTEROLAEMIA
     Dosage: 140 MG, UNK
     Route: 058
     Dates: start: 20160707, end: 20160707
  4. FUROSEMIDE. [Concomitant]
     Active Substance: FUROSEMIDE
  5. IRBESARTAN. [Concomitant]
     Active Substance: IRBESARTAN
  6. OMEPRAZOLE. [Concomitant]
     Active Substance: OMEPRAZOLE
  7. ENALAPRIL [Concomitant]
     Active Substance: ENALAPRIL
  8. EZETIMIBE. [Concomitant]
     Active Substance: EZETIMIBE
  9. METOPROLOL. [Concomitant]
     Active Substance: METOPROLOL
  10. ENOXAPARIN [Concomitant]
     Active Substance: ENOXAPARIN
  11. PARACETAMOL [Concomitant]
     Active Substance: ACETAMINOPHEN
  12. POTASSIUM [Concomitant]
     Active Substance: POTASSIUM
  13. COLECALCIFEROL [Concomitant]
     Active Substance: CHOLECALCIFEROL
  14. HYDROXYCHLOROQUINE [Concomitant]
     Active Substance: HYDROXYCHLOROQUINE
  15. LAMIVUDINE. [Concomitant]
     Active Substance: LAMIVUDINE
  16. DOMPERIDONE [Concomitant]
     Active Substance: DOMPERIDONE
  17. NIFEDIPINE. [Concomitant]
     Active Substance: NIFEDIPINE

REACTIONS (1)
  - Cerebrovascular accident [Not Recovered/Not Resolved]

NARRATIVE: CASE EVENT DATE: 20160723
